FAERS Safety Report 4510583-9 (Version None)
Quarter: 2004Q4

REPORT INFORMATION
  Report Type: 
  Country: None (occurrence: None)
  Receive Date: 20041124
  Receipt Date: 20041117
  Transmission Date: 20050328
  Serious: Yes (Hospitalization)
  Sender: FDA-Public Use
  Company Number: MY-ABBOTT-04P-101-0281098-00

PATIENT
  Age: 57 Year
  Sex: Male

DRUGS (1)
  1. GENGRAF [Suspect]
     Indication: IMMUNOSUPPRESSION
     Route: 048

REACTIONS (4)
  - GRANULOMA [None]
  - LUNG INFILTRATION [None]
  - PULMONARY NECROSIS [None]
  - PYREXIA [None]
